FAERS Safety Report 13698310 (Version 2)
Quarter: 2017Q4

REPORT INFORMATION
  Report Type: Spontaneous
  Country: IT (occurrence: IT)
  Receive Date: 20170628
  Receipt Date: 20171214
  Transmission Date: 20180320
  Serious: Yes (Other)
  Sender: FDA-Public Use
  Company Number: IT-REGENERON PHARMACEUTICALS, INC.-2017-17852

PATIENT

DRUGS (3)
  1. EYLEA [Suspect]
     Active Substance: AFLIBERCEPT
     Dosage: UNK
     Route: 047
     Dates: start: 201704, end: 201704
  2. EYLEA [Suspect]
     Active Substance: AFLIBERCEPT
     Dosage: UNK NUMBER OF INJECTIONS NOT SPECIFIED
     Route: 047
  3. EYLEA [Suspect]
     Active Substance: AFLIBERCEPT
     Indication: PRODUCT USED FOR UNKNOWN INDICATION
     Dosage: UNK NUMBER OF INJECTIONS NOT SPECIFIED
     Route: 047

REACTIONS (1)
  - Ocular vasculitis [Not Recovered/Not Resolved]

NARRATIVE: CASE EVENT DATE: 201705
